FAERS Safety Report 9456088 (Version 4)
Quarter: 2013Q4

REPORT INFORMATION
  Report Type: Report from Study
  Country: US (occurrence: US)
  Receive Date: 20130813
  Receipt Date: 20131105
  Transmission Date: 20140711
  Serious: Yes (Hospitalization, Other)
  Sender: FDA-Public Use
  Company Number: US-ACTELION-A-NJ2012-66616

PATIENT
  Age: 59 Year
  Sex: Female

DRUGS (3)
  1. TRACLEER [Suspect]
     Indication: PULMONARY ARTERIAL HYPERTENSION
     Dosage: UNK
     Route: 048
     Dates: start: 2011
  2. ADCIRCA [Concomitant]
  3. COUMADIN [Concomitant]

REACTIONS (11)
  - Cellulitis [Unknown]
  - Peroneal nerve injury [Unknown]
  - Peroneal nerve palsy [Unknown]
  - Pain in extremity [Unknown]
  - Dental operation [Not Recovered/Not Resolved]
  - Bone graft [Unknown]
  - Dyspnoea [Unknown]
  - Weight decreased [Unknown]
  - Tooth extraction [Unknown]
  - Dental implantation [Unknown]
  - Tooth impacted [Unknown]
